FAERS Safety Report 25995501 (Version 1)
Quarter: 2025Q4

REPORT INFORMATION
  Report Type: Spontaneous
  Country: EC (occurrence: EC)
  Receive Date: 20251104
  Receipt Date: 20251104
  Transmission Date: 20260117
  Serious: Yes (Other)
  Sender: HQ SPECIALTY
  Company Number: EC-HQ-20250077

PATIENT
  Age: 23 Year
  Sex: Male

DRUGS (6)
  1. FLUCONAZOLE [Suspect]
     Active Substance: FLUCONAZOLE
     Indication: Post procedural meningitis
     Dates: start: 202505
  2. LINEZOLID [Suspect]
     Active Substance: LINEZOLID
     Indication: Pseudomonas aeruginosa meningitis
     Route: 042
     Dates: start: 20250421
  3. AMPHOTERICIN B DEOXYCHOLATE [Concomitant]
     Active Substance: AMPHOTERICIN B DEOXYCHOLATE
     Indication: Pseudomonas aeruginosa meningitis
     Dosage: IN 500 ML OF 5 % DEXTROSE OVER 6 HOUR INFUSION
     Dates: start: 202505
  4. AZITHROMYCIN [Concomitant]
     Active Substance: AZITHROMYCIN
     Indication: Pseudomonas aeruginosa meningitis
     Dosage: ()
     Dates: start: 202505
  5. RIFAMPIN [Concomitant]
     Active Substance: RIFAMPIN
     Indication: Pseudomonas aeruginosa meningitis
     Dosage: ()
     Dates: start: 202505
  6. MILTEFOSINE [Concomitant]
     Active Substance: MILTEFOSINE
     Indication: Pseudomonas aeruginosa meningitis
     Dosage: ()
     Dates: start: 202505

REACTIONS (4)
  - Electrolyte imbalance [Recovered/Resolved]
  - Bradycardia [Recovered/Resolved]
  - Anaemia [Recovered/Resolved]
  - Off label use [Recovered/Resolved]

NARRATIVE: CASE EVENT DATE: 20250501
